FAERS Safety Report 4922625-7 (Version None)
Quarter: 2006Q1

REPORT INFORMATION
  Report Type: 
  Country: None (occurrence: None)
  Receive Date: 20060224
  Receipt Date: 20060215
  Transmission Date: 20060701
  Serious: Yes (Other)
  Sender: FDA-Public Use
  Company Number: US-JNJFOC-20060204192

PATIENT
  Age: 94 Year
  Sex: Female

DRUGS (2)
  1. RISPERDAL [Suspect]
     Indication: DEMENTIA
     Route: 048
  2. HALDOL [Suspect]
     Indication: AGITATION
     Route: 048

REACTIONS (2)
  - AGITATION [None]
  - CEREBROVASCULAR ACCIDENT [None]
